FAERS Safety Report 4934951-6 (Version None)
Quarter: 2006Q1

REPORT INFORMATION
  Report Type: 
  Country: None (occurrence: None)
  Receive Date: 20060303
  Receipt Date: 20060303
  Transmission Date: 20060701
  Serious: Yes (Life-Threatening, Hospitalization)
  Sender: FDA-Public Use
  Company Number: None

PATIENT
  Age: 45 Year
  Sex: Female
  Weight: 54.8852 kg

DRUGS (3)
  1. BEVACIZUMAB    15MG/KG [Suspect]
     Indication: GASTRIC CANCER
     Dosage: 859MG   EVERY 21 DAYS   IV DRIP
     Route: 041
     Dates: start: 20060110, end: 20060222
  2. OXALIPLATIN    75MG/M2 [Suspect]
     Indication: GASTRIC CANCER
     Dosage: 115MG   EVERY 21 DAYS   IV DRIP
     Route: 041
     Dates: start: 20060110, end: 20060222
  3. DOCETAXEL   70MG/M2 [Suspect]
     Indication: GASTRIC CANCER
     Dosage: 107MG  EVERY 21 DAYS  IV DRIP
     Route: 041
     Dates: start: 20060110, end: 20060222

REACTIONS (2)
  - FLATULENCE [None]
  - INTESTINAL PERFORATION [None]
